FAERS Safety Report 11643989 (Version 1)
Quarter: 2015Q4

REPORT INFORMATION
  Report Type: Spontaneous
  Country: US (occurrence: None)
  Receive Date: 20151019
  Receipt Date: 20151019
  Transmission Date: 20160304
  Serious: Yes (Disabling)
  Sender: FDA-Public Use
  Company Number: None

PATIENT
  Age: 46 Year
  Sex: Female
  Weight: 54.43 kg

DRUGS (6)
  1. LO LOESTRIN FE [Concomitant]
     Active Substance: ETHINYL ESTRADIOL\NORETHINDRONE ACETATE
  2. CREON [Concomitant]
     Active Substance: PANCRELIPASE AMYLASE\PANCRELIPASE LIPASE\PANCRELIPASE PROTEASE
  3. OXYCODONE [Concomitant]
     Active Substance: OXYCODONE
  4. CLONAZEPAM .25MG UNKNOWN GENERIC [Suspect]
     Active Substance: CLONAZEPAM
     Indication: NAUSEA
     Route: 048
     Dates: start: 20110926, end: 20151002
  5. ZOFRAN [Concomitant]
     Active Substance: ONDANSETRON HYDROCHLORIDE
  6. CLONAZEPAM .25MG UNKNOWN GENERIC [Suspect]
     Active Substance: CLONAZEPAM
     Indication: ANXIETY
     Route: 048
     Dates: start: 20110926, end: 20151002

REACTIONS (1)
  - Pancreatitis chronic [None]

NARRATIVE: CASE EVENT DATE: 20151002
